FAERS Safety Report 12679917 (Version 1)
Quarter: 2016Q3

REPORT INFORMATION
  Report Type: Spontaneous
  Country: US (occurrence: None)
  Receive Date: 20160823
  Receipt Date: 20160823
  Transmission Date: 20161109
  Serious: Yes (Disabling)
  Sender: FDA-Public Use
  Company Number: None

PATIENT
  Age: 70 Year
  Sex: Female
  Weight: 55.79 kg

DRUGS (5)
  1. DIAZEPAM. [Suspect]
     Active Substance: DIAZEPAM
     Indication: TEMPOROMANDIBULAR JOINT SYNDROME
     Dosage: 1 PILL AT BEDTIME MOUTH
     Route: 048
  2. CRESTOR [Concomitant]
     Active Substance: ROSUVASTATIN CALCIUM
  3. LEXAPRO [Concomitant]
     Active Substance: ESCITALOPRAM OXALATE
  4. VALIUM [Concomitant]
     Active Substance: DIAZEPAM
  5. DIAZEPAM. [Suspect]
     Active Substance: DIAZEPAM
     Indication: ARTHROPATHY
     Dosage: 1 PILL AT BEDTIME MOUTH
     Route: 048

REACTIONS (3)
  - Product substitution issue [None]
  - Gastritis [None]
  - Irritable bowel syndrome [None]
